FAERS Safety Report 16720334 (Version 1)
Quarter: 2019Q3

REPORT INFORMATION
  Report Type: Spontaneous
  Country: IT (occurrence: IT)
  Receive Date: 20190820
  Receipt Date: 20190820
  Transmission Date: 20191005
  Serious: Yes (Other)
  Sender: FDA-Public Use
  Company Number: IT-MYLANLABS-2019M1075012

PATIENT
  Age: 16 Year
  Sex: Male

DRUGS (2)
  1. IMATINIB. [Suspect]
     Active Substance: IMATINIB MESYLATE
     Indication: PRODUCT USED FOR UNKNOWN INDICATION
     Dosage: UNK
     Route: 065
  2. CYCLOSPORINE. [Suspect]
     Active Substance: CYCLOSPORINE
     Indication: CHRONIC GRAFT VERSUS HOST DISEASE
     Dosage: UNK
     Route: 065

REACTIONS (8)
  - Central nervous system lesion [Unknown]
  - Tremor [Unknown]
  - Chronic graft versus host disease [Recovering/Resolving]
  - Lymphopenia [Unknown]
  - Progressive multifocal leukoencephalopathy [Unknown]
  - Posterior reversible encephalopathy syndrome [Unknown]
  - Viral infection [Unknown]
  - Condition aggravated [Recovering/Resolving]
